FAERS Safety Report 7803838-3 (Version None)
Quarter: 2011Q4

REPORT INFORMATION
  Report Type: 
  Country: None (occurrence: None)
  Receive Date: 20111010
  Receipt Date: 20110927
  Transmission Date: 20120403
  Serious: Yes (Hospitalization)
  Sender: FDA-Public Use
  Company Number: CA-JNJFOC-20110912308

PATIENT
  Sex: Female
  Weight: 53.8 kg

DRUGS (3)
  1. PREDNISONE [Concomitant]
     Route: 065
  2. REMICADE [Suspect]
     Indication: CROHN'S DISEASE
     Route: 042
     Dates: start: 20110819
  3. REMICADE [Suspect]
     Route: 042
     Dates: start: 20100101

REACTIONS (3)
  - UTERINE DILATION AND CURETTAGE [None]
  - MYOCARDIAL INFARCTION [None]
  - THROMBOSIS [None]
